FAERS Safety Report 23616755 (Version 1)
Quarter: 2024Q1

REPORT INFORMATION
  Report Type: Report from Study
  Country: US (occurrence: US)
  Receive Date: 20240311
  Receipt Date: 20240311
  Transmission Date: 20240410
  Serious: Yes (Other)
  Sender: FDA-Public Use
  Company Number: US-ABBVIE-5669335

PATIENT
  Sex: Female

DRUGS (1)
  1. LINZESS [Suspect]
     Active Substance: LINACLOTIDE
     Indication: Product used for unknown indication
     Dosage: 72G CAP
     Route: 048
     Dates: start: 20220101

REACTIONS (9)
  - Femur fracture [Unknown]
  - Nasal congestion [Unknown]
  - Sinus disorder [Unknown]
  - Fall [Unknown]
  - COVID-19 [Unknown]
  - Aphonia [Recovering/Resolving]
  - Respiratory disorder [Unknown]
  - Respiratory tract congestion [Unknown]
  - Ear congestion [Unknown]

NARRATIVE: CASE EVENT DATE: 20230501
